FAERS Safety Report 13077324 (Version 1)
Quarter: 2016Q4

REPORT INFORMATION
  Report Type: Spontaneous
  Country: US (occurrence: US)
  Receive Date: 20161230
  Receipt Date: 20161230
  Transmission Date: 20170207
  Serious: Yes (Death)
  Sender: FDA-Public Use
  Company Number: US-JNJFOC-20161225127

PATIENT
  Sex: Male

DRUGS (2)
  1. LOPERAMIDE [Suspect]
     Active Substance: LOPERAMIDE
     Route: 065
  2. LOPERAMIDE [Suspect]
     Active Substance: LOPERAMIDE
     Indication: PRODUCT USED FOR UNKNOWN INDICATION
     Route: 065

REACTIONS (1)
  - Drug abuse [Fatal]
